FAERS Safety Report 17762530 (Version 2)
Quarter: 2020Q2

REPORT INFORMATION
  Report Type: Spontaneous
  Country: US (occurrence: US)
  Receive Date: 20200508
  Receipt Date: 20200629
  Transmission Date: 20200714
  Serious: No
  Sender: FDA-Public Use
  Company Number: US-ASTRAZENECA-2020SE59681

PATIENT
  Age: 24717 Day
  Sex: Female
  Weight: 81.2 kg

DRUGS (6)
  1. SYMBICORT [Suspect]
     Active Substance: BUDESONIDE\FORMOTEROL FUMARATE DIHYDRATE
     Indication: ASTHMA
     Dosage: 80/4.5, UNKNOWN UNKNOWN
     Route: 055
     Dates: start: 20151113
  2. SYMBICORT [Suspect]
     Active Substance: BUDESONIDE\FORMOTEROL FUMARATE DIHYDRATE
     Indication: CHRONIC OBSTRUCTIVE PULMONARY DISEASE
     Dosage: 80/4.5, UNKNOWN UNKNOWN
     Route: 055
     Dates: start: 20151113
  3. CALCIUM [Concomitant]
     Active Substance: CALCIUM
     Indication: POST PROCEDURAL COMPLICATION
     Dosage: UNKNOWN
     Route: 048
  4. SYMBICORT [Suspect]
     Active Substance: BUDESONIDE\FORMOTEROL FUMARATE DIHYDRATE
     Indication: CHRONIC OBSTRUCTIVE PULMONARY DISEASE
     Dosage: 160/4.5 MCG, 2 PUFFS TWO TIMES A DAY
     Route: 055
     Dates: start: 2014
  5. SYMBICORT [Suspect]
     Active Substance: BUDESONIDE\FORMOTEROL FUMARATE DIHYDRATE
     Indication: ASTHMA
     Dosage: 160/4.5 MCG, 2 PUFFS TWO TIMES A DAY
     Route: 055
     Dates: start: 2014
  6. VITAMIN D [Concomitant]
     Active Substance: VITAMIN D NOS
     Indication: POST PROCEDURAL COMPLICATION
     Dosage: UNKNOWN
     Route: 065

REACTIONS (3)
  - Bone density decreased [Unknown]
  - Body height decreased [Unknown]
  - Malabsorption [Unknown]
